FAERS Safety Report 7958954-2 (Version None)
Quarter: 2011Q4

REPORT INFORMATION
  Report Type: 
  Country: None (occurrence: None)
  Receive Date: 20111206
  Receipt Date: 20111129
  Transmission Date: 20120403
  Serious: Yes (Other)
  Sender: FDA-Public Use
  Company Number: GB-B.I. PHARMACEUTICALS,INC./RIDGEFIELD-2011-UK-01307UK

PATIENT
  Sex: Male

DRUGS (2)
  1. PRADAXA [Suspect]
     Indication: ATRIAL FIBRILLATION
     Dosage: 220 MG
  2. DICLOFENAC [Concomitant]
     Indication: GOUT
     Dosage: 150 MG

REACTIONS (5)
  - MEMORY IMPAIRMENT [None]
  - CONFUSIONAL STATE [None]
  - BLINDNESS UNILATERAL [None]
  - BLINDNESS [None]
  - HEADACHE [None]
